FAERS Safety Report 6257144-1 (Version None)
Quarter: 2009Q3

REPORT INFORMATION
  Report Type: 
  Country: None (occurrence: None)
  Receive Date: 20090706
  Receipt Date: 20090522
  Transmission Date: 20100115
  Serious: No
  Sender: FDA-Public Use
  Company Number: US-BAYER-200923552NA

PATIENT
  Sex: Male
  Weight: 69 kg

DRUGS (4)
  1. ULTRAVIST 240 [Suspect]
     Indication: HAEMATURIA
     Dosage: TOTAL DAILY DOSE: 195 ML
     Route: 042
  2. LIPITOR [Concomitant]
  3. ENALAPRIL [Concomitant]
  4. ASPIRIN [Concomitant]

REACTIONS (3)
  - LIP SWELLING [None]
  - NASAL CONGESTION [None]
  - SNEEZING [None]
